FAERS Safety Report 10263896 (Version 1)
Quarter: 2014Q2

REPORT INFORMATION
  Report Type: Report from Study
  Country: US (occurrence: US)
  Receive Date: 20140627
  Receipt Date: 20140627
  Transmission Date: 20141212
  Serious: Yes (Other)
  Sender: FDA-Public Use
  Company Number: US-ROCHE-1423437

PATIENT
  Sex: 0

DRUGS (3)
  1. CAPECITABINE [Suspect]
     Indication: NEOPLASM
     Dosage: COHORT LEVEL -1
     Route: 065
  2. CAPECITABINE [Suspect]
     Dosage: COHORT LEVEL 1
     Route: 065
  3. IMATINIB [Suspect]
     Indication: NEOPLASM
     Route: 065

REACTIONS (6)
  - Diarrhoea [Unknown]
  - Dizziness [Unknown]
  - Hypophosphataemia [Unknown]
  - Anaemia [Unknown]
  - Fatigue [Unknown]
  - Palmar-plantar erythrodysaesthesia syndrome [Unknown]
